FAERS Safety Report 7777694-6 (Version None)
Quarter: 2011Q3

REPORT INFORMATION
  Report Type: 
  Country: None (occurrence: None)
  Receive Date: 20110926
  Receipt Date: 20110915
  Transmission Date: 20111222
  Serious: Yes (Death, Hospitalization, Other)
  Sender: FDA-Public Use
  Company Number: US-BAXTER-2011BH029332

PATIENT
  Age: 30 Year
  Sex: Male
  Weight: 101 kg

DRUGS (1)
  1. SODIUM CHLORIDE 0.9% IN PLASTIC CONTAINER [Suspect]
     Indication: FLUID REPLACEMENT
     Route: 065
     Dates: start: 20110912, end: 20110912

REACTIONS (2)
  - DEATH [None]
  - UNRESPONSIVE TO STIMULI [None]
